FAERS Safety Report 18351133 (Version 2)
Quarter: 2020Q4

REPORT INFORMATION
  Report Type: Report from Study
  Country: BG (occurrence: BG)
  Receive Date: 20201006
  Receipt Date: 20201109
  Transmission Date: 20210114
  Serious: Yes (Hospitalization, Other)
  Sender: FDA-Public Use
  Company Number: BG-ASTRAZENECA-2020SF28160

PATIENT
  Age: 61 Year
  Sex: Male

DRUGS (6)
  1. IMFINZI [Suspect]
     Active Substance: DURVALUMAB
     Indication: NON-SMALL CELL LUNG CANCER STAGE IIIB
     Dosage: 10 MG/KG EVERY 2 WEEKS
     Route: 042
     Dates: start: 20191202
  2. CARBOPLATIN. [Concomitant]
     Active Substance: CARBOPLATIN
     Indication: NON-SMALL CELL LUNG CANCER STAGE IIIB
     Dosage: AUC 2
     Dates: start: 20190909, end: 20191024
  3. IMFINZI [Suspect]
     Active Substance: DURVALUMAB
     Indication: NON-SMALL CELL LUNG CANCER STAGE IIIB
     Dosage: 10 MG/KG EVERY 2 WEEKS
     Route: 042
     Dates: start: 20191118
  4. RADIOTHERAPY [Concomitant]
     Active Substance: RADIATION THERAPY
     Indication: NON-SMALL CELL LUNG CANCER STAGE IIIB
     Dosage: 59.4 GY, GIVEN IN 1.8 GY ONCE-DAILY FRACTIONS OVER 6 WEEKS
     Dates: start: 20190909, end: 20191024
  5. IMFINZI [Suspect]
     Active Substance: DURVALUMAB
     Indication: NON-SMALL CELL LUNG CANCER STAGE IIIB
     Dosage: 10 MG/KG EVERY 2 WEEKS
     Route: 042
     Dates: start: 20191217
  6. PACLITAXEL. [Concomitant]
     Active Substance: PACLITAXEL
     Indication: NON-SMALL CELL LUNG CANCER STAGE IIIB
     Dosage: 40 MG
     Dates: start: 20190909, end: 20191024

REACTIONS (3)
  - Tumour hyperprogression [Unknown]
  - Pleural effusion [Unknown]
  - Metastasis [Unknown]
